FAERS Safety Report 6131005-0 (Version None)
Quarter: 2009Q1

REPORT INFORMATION
  Report Type: 
  Country: None (occurrence: None)
  Receive Date: 20090325
  Receipt Date: 20090320
  Transmission Date: 20090719
  Serious: Yes (Hospitalization)
  Sender: FDA-Public Use
  Company Number: GB-SP-2009-01133

PATIENT
  Age: 62 Year
  Sex: Male

DRUGS (1)
  1. IMMUCYST [Suspect]
     Indication: BLADDER CANCER
     Route: 043
     Dates: start: 20081218, end: 20090129

REACTIONS (6)
  - ASCITES [None]
  - BACK PAIN [None]
  - BLADDER PAIN [None]
  - CHILLS [None]
  - LIVER FUNCTION TEST ABNORMAL [None]
  - PYREXIA [None]
